FAERS Safety Report 4837592-4 (Version None)
Quarter: 2005Q4

REPORT INFORMATION
  Report Type: 
  Country: None (occurrence: None)
  Receive Date: 20051122
  Receipt Date: 20051109
  Transmission Date: 20060501
  Serious: Yes (Hospitalization)
  Sender: FDA-Public Use
  Company Number: 218643

PATIENT
  Age: 42 Year
  Sex: Female
  Weight: 50 kg

DRUGS (15)
  1. MABTHERA(RITUXIMAB) CONC FOR SOLUTION FOR INFUSION [Suspect]
     Indication: DIFFUSE LARGE B-CELL LYMPHOMA
     Dosage: 570 MG, QD, INTRAVENOUS
     Route: 042
     Dates: start: 20050914, end: 20050914
  2. DOXORUBICIN HYDROCHLORIDE [Suspect]
     Dosage: 110 MG, QD,
     Dates: start: 20050914, end: 20050914
  3. VINDESINE (VINDESINE) [Suspect]
     Dosage: 1.8 G, QD,
     Dates: start: 20050914, end: 20050914
  4. CYCLOPHOSPHAMIDE [Suspect]
     Dosage: 1.8 MG, QD,
     Dates: start: 20050914, end: 20050914
  5. METHOTREXATE [Suspect]
     Dosage: 15 MG, QD, INTRATHECAL
     Route: 037
  6. PERFALGAN (ACETAMINOPHEN) [Concomitant]
  7. POLARAMINE [Concomitant]
  8. SOLU-MEDROL [Concomitant]
  9. DI-ANTALVIC (ACETAMINOPHEN, PROPOXYPHENE HYDROCHLORIDE) [Concomitant]
  10. PREDNISONE [Concomitant]
  11. ZOFRAN [Concomitant]
  12. PLITICAN (ALIZAPRIDE HYDROCHLORIDE) [Concomitant]
  13. CITALOPRAM HYDROBROMIDE [Concomitant]
  14. RULID (ROXITHROMYCIN) [Concomitant]
  15. MELODIA (GESTODENE, ETHINYL ESTRADIOL) [Concomitant]

REACTIONS (4)
  - ALCOHOL POISONING [None]
  - ILEUS PARALYTIC [None]
  - LEUKOENCEPHALOPATHY [None]
  - POST LUMBAR PUNCTURE SYNDROME [None]
